FAERS Safety Report 6107799-7 (Version None)
Quarter: 2009Q1

REPORT INFORMATION
  Report Type: 
  Country: None (occurrence: None)
  Receive Date: 20090309
  Receipt Date: 20090305
  Transmission Date: 20090719
  Serious: Yes (Hospitalization)
  Sender: FDA-Public Use
  Company Number: B0562651A

PATIENT
  Age: 59 Year
  Sex: Male

DRUGS (5)
  1. VALTREX [Suspect]
     Indication: DRUG USE FOR UNKNOWN INDICATION
     Dosage: 1000MG THREE TIMES PER DAY
     Route: 048
     Dates: start: 20090223, end: 20090224
  2. CEFZON [Concomitant]
     Route: 048
  3. CASAL [Concomitant]
     Route: 061
  4. ANDERM [Concomitant]
     Route: 061
  5. LOXOPROFEN [Concomitant]
     Route: 048

REACTIONS (3)
  - CELLULITIS [None]
  - EYELID OEDEMA [None]
  - RASH [None]
